FAERS Safety Report 8131942-1 (Version None)
Quarter: 2012Q1

REPORT INFORMATION
  Report Type: 
  Country: None (occurrence: None)
  Receive Date: 20120213
  Receipt Date: 20120208
  Transmission Date: 20120608
  Serious: Yes (Hospitalization)
  Sender: FDA-Public Use
  Company Number: JP-BRACCO-005632

PATIENT
  Age: 71 Year
  Sex: Male

DRUGS (1)
  1. IOPAMIDOL [Suspect]
     Indication: COMPUTERISED TOMOGRAM
     Route: 042
     Dates: start: 20120203, end: 20120203

REACTIONS (4)
  - AMNESIA [None]
  - ERYTHEMA [None]
  - CHILLS [None]
  - BLOOD PRESSURE INCREASED [None]
